FAERS Safety Report 5170224-7 (Version None)
Quarter: 2006Q4

REPORT INFORMATION
  Report Type: 
  Country: None (occurrence: None)
  Receive Date: 20061204
  Receipt Date: 20061117
  Transmission Date: 20070319
  Serious: Yes (Life-Threatening, Hospitalization)
  Sender: FDA-Public Use
  Company Number: DSA_29035_2006

PATIENT
  Age: 44 Year
  Sex: Female

DRUGS (2)
  1. TAVOR [Suspect]
     Dosage: 20 MG ONCE PO
     Route: 048
     Dates: start: 20061116, end: 20061116
  2. KATADOLON [Suspect]
     Dosage: 30 TAB ONCE PO
     Route: 048
     Dates: start: 20061116, end: 20061116

REACTIONS (3)
  - MULTIPLE DRUG OVERDOSE [None]
  - SUICIDE ATTEMPT [None]
  - TACHYCARDIA [None]
